FAERS Safety Report 21205767 (Version 1)
Quarter: 2022Q3

REPORT INFORMATION
  Report Type: Report from Study
  Country: MA (occurrence: MA)
  Receive Date: 20220812
  Receipt Date: 20220812
  Transmission Date: 20221027
  Serious: Yes (Other)
  Sender: FDA-Public Use
  Company Number: MA-Nexus Pharma-000119

PATIENT

DRUGS (3)
  1. BUSULFAN [Suspect]
     Active Substance: BUSULFAN
     Indication: Chemotherapy
  2. FLUDARABINE [Suspect]
     Active Substance: FLUDARABINE PHOSPHATE
     Indication: Chemotherapy
  3. MELPHALAN [Suspect]
     Active Substance: MELPHALAN
     Indication: Chemotherapy

REACTIONS (1)
  - Candida sepsis [Unknown]
